FAERS Safety Report 16559708 (Version 3)
Quarter: 2021Q1

REPORT INFORMATION
  Report Type: Report from Study
  Country: JP (occurrence: JP)
  Receive Date: 20190711
  Receipt Date: 20210304
  Transmission Date: 20210419
  Serious: Yes (Other)
  Sender: FDA-Public Use
  Company Number: JP-SA-2019SA183532

PATIENT
  Age: 69 Year
  Sex: Male
  Weight: 58 kg

DRUGS (37)
  1. FLUOROURACIL. [Suspect]
     Active Substance: FLUOROURACIL
     Dosage: 2340 MG/M2, 1X
     Route: 041
     Dates: start: 20181122, end: 20181122
  2. FLUOROURACIL. [Suspect]
     Active Substance: FLUOROURACIL
     Dosage: 200 MG/M2, 1X
     Route: 040
     Dates: start: 20181221, end: 20181221
  3. IRINOTECAN [Suspect]
     Active Substance: IRINOTECAN
     Dosage: 200 MG/M2, 1X
     Route: 065
     Dates: start: 20181122, end: 20181122
  4. CALCIUM FOLINATE [Suspect]
     Active Substance: LEUCOVORIN CALCIUM
     Dosage: 400 MG/M2, QOW
     Route: 065
     Dates: start: 20180928, end: 20181109
  5. FLUOROURACIL. [Suspect]
     Active Substance: FLUOROURACIL
     Dosage: 200 MG/M2, QOW
     Route: 040
     Dates: start: 20180928, end: 20181109
  6. FLUOROURACIL. [Suspect]
     Active Substance: FLUOROURACIL
     Dosage: 2340 MG/M2, QOW
     Route: 041
     Dates: start: 20180525, end: 20180803
  7. FLUOROURACIL. [Suspect]
     Active Substance: FLUOROURACIL
     Dosage: 400 MG/M2, QOW
     Route: 040
     Dates: start: 20180525, end: 20180803
  8. FLUOROURACIL. [Suspect]
     Active Substance: FLUOROURACIL
     Dosage: 2340 MG/M2, 1X
     Route: 041
     Dates: start: 20181221, end: 20181221
  9. FLUOROURACIL. [Suspect]
     Active Substance: FLUOROURACIL
     Dosage: 2340 MG/M2, 1X
     Route: 041
     Dates: start: 20190118, end: 20190118
  10. IRINOTECAN [Suspect]
     Active Substance: IRINOTECAN
     Dosage: 200 MG/M2, QOW
     Route: 065
     Dates: start: 20180928, end: 20181109
  11. IRINOTECAN [Suspect]
     Active Substance: IRINOTECAN
     Dosage: 200 MG/M2, 1X
     Route: 065
     Dates: start: 20181221, end: 20181221
  12. CALCIUM FOLINATE [Suspect]
     Active Substance: LEUCOVORIN CALCIUM
     Dosage: 200 MG/M2, QOW
     Route: 065
     Dates: start: 20180525, end: 20180803
  13. AFLIBERCEPT [Suspect]
     Active Substance: AFLIBERCEPT
     Dosage: 2 MG/KG, 1X
     Route: 041
     Dates: start: 20181026, end: 20181026
  14. FLUOROURACIL. [Suspect]
     Active Substance: FLUOROURACIL
     Dosage: 2340 MG/M2, QOW
     Route: 041
     Dates: start: 20180817, end: 20180831
  15. FLUOROURACIL. [Suspect]
     Active Substance: FLUOROURACIL
     Dosage: 2340 MG/M2, 1X
     Route: 041
     Dates: start: 20190301, end: 20190301
  16. IRINOTECAN [Suspect]
     Active Substance: IRINOTECAN
     Dosage: 150 MG/M2, QOW
     Route: 065
     Dates: start: 20180525, end: 20180803
  17. IRINOTECAN [Suspect]
     Active Substance: IRINOTECAN
     Dosage: UNK
     Route: 065
  18. CALCIUM FOLINATE [Suspect]
     Active Substance: LEUCOVORIN CALCIUM
     Indication: COLON CANCER
     Dosage: 400 MG/M2, QOW
     Route: 065
     Dates: start: 20180817, end: 20180831
  19. CALCIUM FOLINATE [Suspect]
     Active Substance: LEUCOVORIN CALCIUM
     Dosage: 400 MG/M2, 1X
     Route: 065
     Dates: start: 20190301, end: 20190301
  20. FLUOROURACIL. [Suspect]
     Active Substance: FLUOROURACIL
     Dosage: UNK
     Route: 065
  21. IRINOTECAN [Suspect]
     Active Substance: IRINOTECAN
     Dosage: 200 MG/M2, 1X
     Route: 065
     Dates: start: 20190118, end: 20190118
  22. CALCIUM FOLINATE [Suspect]
     Active Substance: LEUCOVORIN CALCIUM
     Dosage: 400 MG/M2, 1X
     Route: 065
     Dates: start: 20181221, end: 20181221
  23. AFLIBERCEPT [Suspect]
     Active Substance: AFLIBERCEPT
     Dosage: 2 MG/KG (115 MG/BODY), QOW
     Route: 041
     Dates: start: 20180928, end: 20180928
  24. FLUOROURACIL. [Suspect]
     Active Substance: FLUOROURACIL
     Indication: COLON CANCER
     Dosage: 200 MG/M2, QOW
     Route: 040
     Dates: start: 20180817, end: 20180831
  25. CALCIUM FOLINATE [Suspect]
     Active Substance: LEUCOVORIN CALCIUM
     Dosage: 400 MG/M2, 1X
     Route: 065
     Dates: start: 20181122, end: 20181122
  26. CALCIUM FOLINATE [Suspect]
     Active Substance: LEUCOVORIN CALCIUM
     Dosage: UNK
     Route: 065
  27. AFLIBERCEPT [Suspect]
     Active Substance: AFLIBERCEPT
     Dosage: 2 MG/KG, 1X
     Route: 041
     Dates: start: 20181122, end: 20181122
  28. FLUOROURACIL. [Suspect]
     Active Substance: FLUOROURACIL
     Dosage: 200 MG/M2, 1X
     Route: 040
     Dates: start: 20181122, end: 20181122
  29. FLUOROURACIL. [Suspect]
     Active Substance: FLUOROURACIL
     Dosage: 200 MG/M2, 1X
     Route: 040
     Dates: start: 20190301, end: 20190301
  30. IRINOTECAN [Suspect]
     Active Substance: IRINOTECAN
     Dosage: 200 MG/M2, 1X
     Route: 065
     Dates: start: 20190301, end: 20190301
  31. AFLIBERCEPT [Suspect]
     Active Substance: AFLIBERCEPT
     Indication: COLON CANCER
     Dosage: 3.97 MG/KG (230 MG/BODY), QOW
     Route: 041
     Dates: start: 20180525, end: 20180831
  32. AFLIBERCEPT [Suspect]
     Active Substance: AFLIBERCEPT
     Dosage: 2 MG/KG, 1X
     Route: 041
     Dates: start: 20190301, end: 20190301
  33. FLUOROURACIL. [Suspect]
     Active Substance: FLUOROURACIL
     Dosage: 2340 MG/M2, QOW
     Route: 041
     Dates: start: 20180928, end: 20181109
  34. CALCIUM FOLINATE [Suspect]
     Active Substance: LEUCOVORIN CALCIUM
     Dosage: 400 MG/M2, 1X
     Route: 065
     Dates: start: 20190118, end: 20190118
  35. AFLIBERCEPT [Suspect]
     Active Substance: AFLIBERCEPT
     Dosage: 2 MG/KG, 1X
     Route: 041
     Dates: start: 20181221, end: 20181221
  36. FLUOROURACIL. [Suspect]
     Active Substance: FLUOROURACIL
     Dosage: 200 MG/M2, 1X
     Route: 040
     Dates: start: 20190118, end: 20190118
  37. IRINOTECAN [Suspect]
     Active Substance: IRINOTECAN
     Indication: COLON CANCER
     Dosage: 200 MG/M2, QOW
     Route: 065
     Dates: start: 20180817, end: 20180831

REACTIONS (3)
  - Hypertensive crisis [Unknown]
  - Neutropenia [Recovered/Resolved]
  - Hypertension [Recovering/Resolving]

NARRATIVE: CASE EVENT DATE: 20180921
